FAERS Safety Report 8572120-1 (Version None)
Quarter: 2012Q3

REPORT INFORMATION
  Report Type: 
  Country: None (occurrence: None)
  Receive Date: 20120806
  Receipt Date: 20120731
  Transmission Date: 20120928
  Serious: Yes (Death, Hospitalization, Other)
  Sender: FDA-Public Use
  Company Number: PHHY2008JP12496

PATIENT
  Sex: Male
  Weight: 52 kg

DRUGS (37)
  1. CERTICAN [Suspect]
     Dosage: 2.75 MG, UNK
     Route: 048
     Dates: start: 20070728, end: 20071007
  2. PROGRAF [Suspect]
     Dosage: UNK UKN, UNK
     Route: 048
     Dates: start: 20010101, end: 20061201
  3. PROGRAF [Suspect]
     Dosage: 3 MG, UNK
     Route: 048
     Dates: start: 20080801, end: 20080822
  4. MYCOPHENOLATE MOFETIL [Concomitant]
     Dosage: 500 MG, UNK
     Route: 048
     Dates: start: 20010101
  5. CHEMOTHERAPEUTICS NOS [Concomitant]
     Dosage: UNK UKN, UNK
     Dates: start: 20081001, end: 20090301
  6. PRAVASTATIN SODIUM [Concomitant]
     Dosage: 10 MG, UNK
     Route: 048
     Dates: start: 19950601
  7. TRANDOLAPRIL [Concomitant]
     Dosage: 2 MG, UNK
     Route: 048
     Dates: start: 20040712
  8. CERTICAN [Suspect]
     Dosage: 2.75 MG, UNK
     Route: 048
     Dates: start: 20080907, end: 20080927
  9. CERTICAN [Suspect]
     Dosage: 4 MG, UNK
     Route: 048
     Dates: start: 20090719
  10. NEORAL [Suspect]
     Indication: RENAL TRANSPLANT
     Dosage: UNK UKN, UNK
     Dates: start: 20010101, end: 20060101
  11. PREDNISOLONE [Concomitant]
     Dosage: UNK UKN, UNK
     Route: 048
     Dates: start: 19950101
  12. MYCOPHENOLATE MOFETIL [Concomitant]
     Dosage: UNK UKN, UNK
     Route: 048
  13. STEROIDS NOS [Concomitant]
     Dosage: UNK UKN, UNK
     Dates: start: 20010101
  14. PRAVASTATIN SODIUM [Concomitant]
     Dosage: 20 MG, UNK
     Route: 048
  15. CERTICAN [Suspect]
     Dosage: 3 MG, UNK
     Route: 048
     Dates: start: 20070724, end: 20070727
  16. CERTICAN [Suspect]
     Dosage: 2.5 MG, UNK
     Route: 048
     Dates: start: 20080825, end: 20080906
  17. PROGRAF [Suspect]
     Dosage: 4 MG, UNK
     Route: 048
     Dates: start: 20020219, end: 20070712
  18. PROGRAF [Suspect]
     Dosage: 2.25 MG, UNK
     Route: 048
     Dates: start: 20080823, end: 20080825
  19. CERTICAN [Suspect]
     Dosage: 3 MG, UNK
     Route: 048
     Dates: start: 20090606, end: 20090718
  20. CERTICAN [Suspect]
     Dosage: 4.25 MG, DAILY
     Route: 048
     Dates: start: 20090822, end: 20090903
  21. AZATHIOPRINE SODIUM [Concomitant]
     Dosage: UNK UKN, UNK
     Route: 048
     Dates: start: 19950101, end: 20010101
  22. CANDESARTAN CILEXETIL [Concomitant]
     Dosage: 8 MG, UNK
     Route: 048
     Dates: start: 20011205
  23. CERTICAN [Suspect]
     Indication: HEART TRANSPLANT
     Dosage: 2 MG, UNK
     Route: 048
     Dates: start: 20070713, end: 20070723
  24. CERTICAN [Suspect]
     Dosage: 1.75 MG, UNK
     Dates: start: 20080801, end: 20080824
  25. CERTICAN [Suspect]
     Dosage: 4.75 MG, UNK
     Route: 048
     Dates: start: 20091113, end: 20100302
  26. PREDNISOLONE [Suspect]
     Dosage: 5 MG, UNK
     Route: 048
     Dates: start: 20080730
  27. MYCOPHENOLATE MOFETIL [Concomitant]
     Dosage: 250 MG, UNK
     Route: 048
  28. CERTICAN [Suspect]
     Dosage: 2.5 MG, UNK
     Route: 048
     Dates: start: 20071008
  29. CERTICAN [Suspect]
     Dosage: 3.25 MG, UNK
     Route: 048
     Dates: start: 20080928, end: 20090605
  30. PROGRAF [Suspect]
     Dosage: 0.5 MG, UNK
     Route: 048
     Dates: start: 20070713
  31. TACROLIMUS [Concomitant]
     Dosage: UNK UKN, UNK
     Dates: start: 20010101
  32. CERTICAN [Suspect]
     Dosage: 4.5 MG, DAILY
     Route: 048
     Dates: start: 20090904, end: 20091112
  33. NEORAL [Suspect]
     Indication: HEART TRANSPLANT
     Dosage: UNK UKN, UNK
     Route: 048
     Dates: start: 19950101, end: 20010101
  34. PROGRAF [Suspect]
     Dosage: 3.5 MG, UNK
     Route: 048
     Dates: start: 20080729, end: 20080730
  35. PROGRAF [Suspect]
     Dosage: 1.5 MG, UNK
     Route: 048
     Dates: start: 20080928, end: 20081002
  36. CERTICAN [Suspect]
     Dosage: 1.25 MG, UNK
     Route: 048
     Dates: start: 20080730, end: 20080730
  37. PROGRAF [Suspect]
     Dosage: 2 MG, UNK
     Route: 048
     Dates: start: 20080826, end: 20080927

REACTIONS (10)
  - BLOOD TRIGLYCERIDES INCREASED [None]
  - KIDNEY TRANSPLANT REJECTION [None]
  - POST TRANSPLANT LYMPHOPROLIFERATIVE DISORDER [None]
  - DRUG RESISTANCE [None]
  - GENERAL PHYSICAL HEALTH DETERIORATION [None]
  - RENAL FAILURE CHRONIC [None]
  - NEOPLASM PROGRESSION [None]
  - BACK PAIN [None]
  - RENAL IMPAIRMENT [None]
  - C-REACTIVE PROTEIN DECREASED [None]
